FAERS Safety Report 11595235 (Version 2)
Quarter: 2015Q4

REPORT INFORMATION
  Report Type: Report from Study
  Country: JP (occurrence: JP)
  Receive Date: 20151006
  Receipt Date: 20151021
  Transmission Date: 20160304
  Serious: Yes (Hospitalization)
  Sender: FDA-Public Use
  Company Number: JP-ROCHE-1642426

PATIENT
  Age: 62 Year
  Sex: Female
  Weight: 65 kg

DRUGS (2)
  1. VEMURAFENIB [Suspect]
     Active Substance: VEMURAFENIB
     Indication: MALIGNANT MELANOMA
     Dosage: STRENGTH: 240 MG
     Route: 048
     Dates: start: 20150916, end: 20150925
  2. VEMURAFENIB [Suspect]
     Active Substance: VEMURAFENIB
     Dosage: STRENGTH: 240 MG
     Route: 048
     Dates: start: 20151009

REACTIONS (2)
  - Erythema multiforme [Recovering/Resolving]
  - Headache [Recovered/Resolved]

NARRATIVE: CASE EVENT DATE: 20150918
